FAERS Safety Report 10174439 (Version 1)
Quarter: 2014Q2

REPORT INFORMATION
  Report Type: Spontaneous
  Country: US (occurrence: None)
  Receive Date: 20140416
  Receipt Date: 20140416
  Transmission Date: 20141212
  Serious: Yes (Other)
  Sender: FDA-Public Use
  Company Number: 163-POMAL-13120934

PATIENT
  Age: 75 Year
  Sex: Female
  Weight: 66.68 kg

DRUGS (8)
  1. POMALYST (POMALIDOMIDE) (4 MILLIGRAM, CAPSULES) [Suspect]
     Indication: PLASMA CELL MYELOMA
     Route: 048
     Dates: start: 20130805
  2. ASA (ACETYLSALICYLIC ACID) [Concomitant]
  3. LASIX (FUROSEMIDE) [Concomitant]
  4. MAGNESIUM (MAGNESIUM) [Concomitant]
  5. LOMOTIL (LOMOTIL) [Concomitant]
  6. EXALGO ER (HYDROMORPHONE HYDROCHLORIDE) [Concomitant]
  7. HYDROMORPHONE (HYDROMORPHONE) [Concomitant]
  8. VALTREX (VALACICLOVIR HYDROCHLORIDE) [Concomitant]

REACTIONS (1)
  - Anaemia [None]
